FAERS Safety Report 21881393 (Version 1)
Quarter: 2023Q1

REPORT INFORMATION
  Report Type: Report from Study
  Country: DE (occurrence: DE)
  Receive Date: 20230119
  Receipt Date: 20230119
  Transmission Date: 20230418
  Serious: Yes (Hospitalization)
  Sender: FDA-Public Use
  Company Number: DE-JNJFOC-20230129497

PATIENT
  Age: 9 Decade
  Sex: Male

DRUGS (2)
  1. DARZALEX [Suspect]
     Active Substance: DARATUMUMAB
     Indication: Plasma cell myeloma
     Dosage: LAST DOSE WAS ON 29/SEP/2022, AND NEXT DOSE WAS ON 29/OCT/2022.
     Route: 058
     Dates: start: 20220616
  2. VELCADE [Suspect]
     Active Substance: BORTEZOMIB
     Indication: Plasma cell myeloma
     Dosage: NEXT DOSE WAS ON 29/OCT/2022.
     Route: 058
     Dates: start: 20220623, end: 20220929

REACTIONS (1)
  - Paresis [Recovering/Resolving]

NARRATIVE: CASE EVENT DATE: 20221020
